FAERS Safety Report 15536774 (Version 1)
Quarter: 2018Q4

REPORT INFORMATION
  Report Type: Spontaneous
  Country: US (occurrence: US)
  Receive Date: 20181022
  Receipt Date: 20181022
  Transmission Date: 20190205
  Serious: No
  Sender: FDA-Public Use
  Company Number: None

PATIENT
  Age: 14 Year
  Sex: Male
  Weight: 52.65 kg

DRUGS (2)
  1. HYDROCORTISONE VALERATE 0.2% [Concomitant]
  2. EUCRISA [Suspect]
     Active Substance: CRISABOROLE
     Indication: ECZEMA
     Dosage: ?          QUANTITY:60 GRAMS;?

REACTIONS (2)
  - Urticaria [None]
  - Application site rash [None]

NARRATIVE: CASE EVENT DATE: 20181010
